FAERS Safety Report 6210695-8 (Version None)
Quarter: 2009Q2

REPORT INFORMATION
  Report Type: 
  Country: None (occurrence: None)
  Receive Date: 20090528
  Receipt Date: 20090528
  Transmission Date: 20091009
  Serious: No
  Sender: FDA-Public Use
  Company Number: None

PATIENT
  Age: 41 Year
  Sex: Female
  Weight: 63.5036 kg

DRUGS (1)
  1. TRI-LUMA [Suspect]
     Dosage: 30 GM, IT MORE THAN THAT.... FOR 8 WEEK TOP
     Route: 061
     Dates: start: 20071211, end: 20080201

REACTIONS (1)
  - SCAR [None]
